FAERS Safety Report 14260605 (Version 1)
Quarter: 2017Q4

REPORT INFORMATION
  Report Type: Spontaneous
  Country: FR (occurrence: FR)
  Receive Date: 20171207
  Receipt Date: 20171207
  Transmission Date: 20180321
  Serious: Yes (Life-Threatening, Other)
  Sender: FDA-Public Use
  Company Number: FR-FRESENIUS KABI-FK201710327

PATIENT
  Age: 8 Year
  Sex: Male

DRUGS (5)
  1. ETOPOSIDE. [Suspect]
     Active Substance: ETOPOSIDE
     Indication: ATYPICAL TERATOID/RHABDOID TUMOUR OF CNS
     Route: 065
     Dates: start: 201604
  2. CYCLOPHOSPHAMIDE. [Suspect]
     Active Substance: CYCLOPHOSPHAMIDE
     Indication: ATYPICAL TERATOID/RHABDOID TUMOUR OF CNS
     Route: 048
     Dates: start: 201604
  3. CYTARABINE (MANUFACTURER UNKNOWN) [Suspect]
     Active Substance: CYTARABINE
     Indication: ATYPICAL TERATOID/RHABDOID TUMOUR OF CNS
     Route: 037
     Dates: start: 201604
  4. CELECOXIB. [Suspect]
     Active Substance: CELECOXIB
     Indication: ATYPICAL TERATOID/RHABDOID TUMOUR OF CNS
     Route: 048
     Dates: start: 201604
  5. BEVACIZUMAB. [Suspect]
     Active Substance: BEVACIZUMAB
     Indication: ATYPICAL TERATOID/RHABDOID TUMOUR OF CNS
     Route: 042
     Dates: start: 201604

REACTIONS (3)
  - Influenza [Unknown]
  - Neutropenia [Recovered/Resolved]
  - Asthenia [Unknown]
